FAERS Safety Report 25168035 (Version 3)
Quarter: 2025Q3

REPORT INFORMATION
  Report Type: Spontaneous
  Country: JP (occurrence: JP)
  Receive Date: 20250407
  Receipt Date: 20250809
  Transmission Date: 20251021
  Serious: Yes (Other)
  Sender: ALEXION PHARMACEUTICALS
  Company Number: JP-ASTRAZENECA-250031703_013120_P_1

PATIENT
  Sex: Female

DRUGS (6)
  1. IMFINZI [Suspect]
     Active Substance: DURVALUMAB
     Indication: Endometrial cancer
     Dosage: 1120 MILLIGRAM, Q3W
     Dates: start: 20250319
  2. ADRENAL [Suspect]
     Active Substance: EPINEPHRINE
     Indication: Rash
     Dosage: 20 MILLIGRAM, QD
     Dates: start: 20250325
  3. CARBOPLATIN [Concomitant]
     Active Substance: CARBOPLATIN
     Indication: Endometrial cancer
     Route: 065
  4. CARBOPLATIN [Concomitant]
     Active Substance: CARBOPLATIN
     Route: 065
  5. PACLITAXEL [Concomitant]
     Active Substance: PACLITAXEL
     Indication: Endometrial cancer
     Route: 065
  6. PACLITAXEL [Concomitant]
     Active Substance: PACLITAXEL
     Route: 065

REACTIONS (3)
  - Rash [Recovering/Resolving]
  - Blood corticotrophin decreased [Recovering/Resolving]
  - Cortisol decreased [Recovering/Resolving]

NARRATIVE: CASE EVENT DATE: 20250325
